FAERS Safety Report 14273707 (Version 1)
Quarter: 2017Q4

REPORT INFORMATION
  Report Type: Spontaneous
  Country: FR (occurrence: FR)
  Receive Date: 20171211
  Receipt Date: 20171211
  Transmission Date: 20180321
  Serious: Yes (Death, Other)
  Sender: FDA-Public Use
  Company Number: FR-OTSUKA-DJ201401746

PATIENT
  Age: 50 Year
  Sex: Female

DRUGS (10)
  1. ABILIFY [Suspect]
     Active Substance: ARIPIPRAZOLE
     Indication: MAJOR DEPRESSION
     Dosage: UNK
     Route: 065
     Dates: start: 20130313, end: 20130412
  2. NORVIR [Suspect]
     Active Substance: RITONAVIR
     Indication: HIV TEST POSITIVE
     Dosage: 18DEC12 TO 18APR13
     Route: 048
     Dates: start: 20121218
  3. RISPERIDONE. [Suspect]
     Active Substance: RISPERIDONE
     Indication: MAJOR DEPRESSION
     Dosage: 12APR13 TO 18APR13
     Route: 048
     Dates: start: 20130412
  4. PREZISTA [Suspect]
     Active Substance: DARUNAVIR ETHANOLATE
     Indication: HIV TEST POSITIVE
     Dosage: UNK UNK, QD
     Route: 065
     Dates: start: 20121218, end: 20130307
  5. DEROXAT [Suspect]
     Active Substance: PAROXETINE HYDROCHLORIDE
     Indication: PRODUCT USED FOR UNKNOWN INDICATION
     Dosage: FILM-COATED SCORED TAB,25FEB13 TO 18APR13,FEB13:DOSE INCREASED TO 40MG
     Route: 065
     Dates: start: 20130225
  6. CELSENTRI [Suspect]
     Active Substance: MARAVIROC
     Indication: HIV TEST POSITIVE
     Dosage: 22JUN10 TO 18APR13
     Route: 048
     Dates: start: 20100622
  7. RISPERDAL [Suspect]
     Active Substance: RISPERIDONE
     Indication: MAJOR DEPRESSION
     Dosage: 12APR13 TO 18APR13
     Route: 048
     Dates: start: 20130412
  8. VIREAD [Suspect]
     Active Substance: TENOFOVIR DISOPROXIL FUMARATE
     Indication: HIV TEST POSITIVE
     Dosage: 22JUN10 TO 18APR13
     Route: 065
     Dates: start: 20100622
  9. PAROXETINE. [Suspect]
     Active Substance: PAROXETINE
     Indication: PRODUCT USED FOR UNKNOWN INDICATION
     Dosage: FILM-COATED SCORED TAB,25FEB13 TO 18APR13,FEB13:DOSE INCREASED TO 40MG
     Route: 065
     Dates: start: 20130225
  10. INVIRASE [Suspect]
     Active Substance: SAQUINAVIR MESYLATE
     Indication: HIV TEST POSITIVE
     Dosage: 07MAR13-18APR13
     Route: 048
     Dates: start: 20130307

REACTIONS (3)
  - Product use in unapproved indication [Unknown]
  - Major depression [Fatal]
  - Completed suicide [Fatal]

NARRATIVE: CASE EVENT DATE: 201301
